FAERS Safety Report 19750190 (Version 1)
Quarter: 2021Q3

REPORT INFORMATION
  Report Type: Spontaneous
  Country: US (occurrence: US)
  Receive Date: 20210826
  Receipt Date: 20210826
  Transmission Date: 20211014
  Serious: Yes (Other)
  Sender: FDA-Public Use
  Company Number: US-ASTRAZENECA-2021A689770

PATIENT
  Sex: Female

DRUGS (4)
  1. OXYMORPHONE [Concomitant]
     Active Substance: OXYMORPHONE
  2. NEXIUM [Suspect]
     Active Substance: ESOMEPRAZOLE MAGNESIUM
     Route: 065
  3. TIZANIDINE. [Concomitant]
     Active Substance: TIZANIDINE
  4. ESOMEPRAZOLE MAGNESIUM. [Suspect]
     Active Substance: ESOMEPRAZOLE MAGNESIUM
     Dosage: GENERIC
     Route: 065

REACTIONS (12)
  - Abdominal pain upper [Unknown]
  - Muscular sarcoidosis [Unknown]
  - Vision blurred [Unknown]
  - Ocular sarcoidosis [Unknown]
  - Neurosarcoidosis [Unknown]
  - Uveitis [Unknown]
  - Eye inflammation [Unknown]
  - Illness [Unknown]
  - Sarcoidosis [Unknown]
  - Blindness [Unknown]
  - Intraocular pressure test [Unknown]
  - Diarrhoea [Unknown]

NARRATIVE: CASE EVENT DATE: 202010
